FAERS Safety Report 12680403 (Version 1)
Quarter: 2016Q3

REPORT INFORMATION
  Report Type: Spontaneous
  Country: US (occurrence: US)
  Receive Date: 20160824
  Receipt Date: 20160824
  Transmission Date: 20161109
  Serious: Yes (Hospitalization, Other)
  Sender: FDA-Public Use
  Company Number: US-GLAXOSMITHKLINE-US2016GSK121750

PATIENT
  Sex: Female

DRUGS (33)
  1. CECLOR [Suspect]
     Active Substance: CEFACLOR
     Indication: PRODUCT USED FOR UNKNOWN INDICATION
  2. LIDODERM [Concomitant]
     Active Substance: LIDOCAINE
  3. MILK OF MAGNESIA [Concomitant]
     Active Substance: MAGNESIUM HYDROXIDE
  4. TOPAMAX [Suspect]
     Active Substance: TOPIRAMATE
     Indication: PRODUCT USED FOR UNKNOWN INDICATION
  5. LIDOCAINE. [Suspect]
     Active Substance: LIDOCAINE
     Indication: PRODUCT USED FOR UNKNOWN INDICATION
  6. LORTAB (ACETAMINOPHEN + HYDROCODONE) [Concomitant]
  7. CLARITIN [Concomitant]
     Active Substance: LORATADINE
  8. FLEXERIL [Concomitant]
     Active Substance: CYCLOBENZAPRINE HYDROCHLORIDE
  9. POTIGA [Suspect]
     Active Substance: EZOGABINE
     Dosage: 250 MG, TID
     Dates: start: 20140121
  10. TRAMADOL. [Suspect]
     Active Substance: TRAMADOL
     Indication: PRODUCT USED FOR UNKNOWN INDICATION
  11. LASIX [Concomitant]
     Active Substance: FUROSEMIDE
  12. CATAPRES [Concomitant]
     Active Substance: CLONIDINE HYDROCHLORIDE
  13. PHENERGAN [Concomitant]
     Active Substance: PROMETHAZINE HYDROCHLORIDE
  14. HYDROCODONE [Concomitant]
     Active Substance: HYDROCODONE
  15. MIRALAX [Concomitant]
     Active Substance: POLYETHYLENE GLYCOL 3350
  16. DURICEF [Suspect]
     Active Substance: CEFADROXIL
     Indication: PRODUCT USED FOR UNKNOWN INDICATION
  17. NORCO [Concomitant]
     Active Substance: ACETAMINOPHEN\HYDROCODONE BITARTRATE
  18. STADOL [Concomitant]
     Active Substance: BUTORPHANOL TARTRATE
  19. ALUMINUM HYDROXIDE+MAGNESIUM HYDROXIDE+SIMETHICONE [Concomitant]
  20. CEPACOL LOZENGE [Concomitant]
  21. NEURONTIN [Suspect]
     Active Substance: GABAPENTIN
  22. METHOCARBAMOL. [Concomitant]
     Active Substance: METHOCARBAMOL
  23. COLACE [Concomitant]
     Active Substance: DOCUSATE SODIUM
  24. POTIGA [Suspect]
     Active Substance: EZOGABINE
     Indication: SEIZURE
     Dosage: 250 MG, TID
     Dates: start: 20130708
  25. MORPHINE [Suspect]
     Active Substance: MORPHINE
     Indication: PRODUCT USED FOR UNKNOWN INDICATION
  26. ZANAFLEX [Concomitant]
     Active Substance: TIZANIDINE HYDROCHLORIDE
  27. ELAVIL [Concomitant]
     Active Substance: AMITRIPTYLINE HYDROCHLORIDE
  28. VITAMIN B2 [Concomitant]
     Active Substance: RIBOFLAVIN
  29. TORADOL [Suspect]
     Active Substance: KETOROLAC TROMETHAMINE
     Indication: PRODUCT USED FOR UNKNOWN INDICATION
  30. VALIUM [Concomitant]
     Active Substance: DIAZEPAM
  31. PEPCID [Concomitant]
     Active Substance: FAMOTIDINE
  32. CLEOCIN [Concomitant]
     Active Substance: CLINDAMYCIN PHOSPHATE
  33. ZOFRAN [Concomitant]
     Active Substance: ONDANSETRON HYDROCHLORIDE

REACTIONS (34)
  - Neck pain [Unknown]
  - Reflex test abnormal [Unknown]
  - Nerve block [Unknown]
  - Hypoaesthesia [Unknown]
  - Sensory loss [Unknown]
  - Spinal decompression [Unknown]
  - Grip strength decreased [Unknown]
  - Medical device implantation [Unknown]
  - Tenderness [Unknown]
  - Nerve compression [Unknown]
  - Respiratory arrest [Unknown]
  - Muscle spasms [Unknown]
  - Visual acuity reduced [Unknown]
  - Pseudarthrosis [Unknown]
  - Injury [Unknown]
  - Arthrodesis [Unknown]
  - Drug hypersensitivity [Unknown]
  - Nervous system disorder [Unknown]
  - Burning sensation [Unknown]
  - Immune system disorder [Unknown]
  - Pain in extremity [Unknown]
  - Drain placement [Unknown]
  - Discomfort [Unknown]
  - Procedural vomiting [Unknown]
  - Rash [Unknown]
  - Spinal laminectomy [Unknown]
  - Endocrine disorder [Unknown]
  - Back pain [Unknown]
  - Pruritus [Unknown]
  - Intervertebral disc protrusion [Unknown]
  - Spinal pain [Unknown]
  - Procedural nausea [Unknown]
  - Foraminotomy [Unknown]
  - Muscular weakness [Unknown]
